FAERS Safety Report 16657032 (Version 1)
Quarter: 2019Q3

REPORT INFORMATION
  Report Type: Spontaneous
  Country: ES (occurrence: ES)
  Receive Date: 20190801
  Receipt Date: 20190801
  Transmission Date: 20191004
  Serious: Yes (Other)
  Sender: FDA-Public Use
  Company Number: ES-PFIZER INC-2019325302

PATIENT
  Age: 28 Year
  Sex: Male

DRUGS (1)
  1. KETAMINE HCL [Suspect]
     Active Substance: KETAMINE HYDROCHLORIDE
     Dosage: 2 G, 1X/DAY
     Route: 065
     Dates: start: 2006

REACTIONS (4)
  - Micturition urgency [Unknown]
  - Drug abuse [Unknown]
  - Urinary retention [Unknown]
  - Urine flow decreased [Unknown]

NARRATIVE: CASE EVENT DATE: 2006
